FAERS Safety Report 8622308 (Version 3)
Quarter: 2012Q4

REPORT INFORMATION
  Report Type: 
  Country: US (occurrence: US)
  Receive Date: 20120619
  Receipt Date: 20121214
  Transmission Date: 20130627
  Serious: Yes (Other)
  Sender: FDA-Public Use
  Company Number: US-ROCHE-1078915

PATIENT
  Sex: Male
  Weight: 88.53 kg

DRUGS (2)
  1. ACCUTANE [Suspect]
     Indication: ACNE
     Dosage: 1 capsule in morning and 2 at bedtime
     Route: 048
     Dates: start: 20011009, end: 2003
  2. ACCUTANE [Suspect]
     Route: 065
     Dates: start: 2003, end: 2004

REACTIONS (6)
  - Colitis ulcerative [Unknown]
  - Injury [Unknown]
  - Emotional distress [Unknown]
  - Inflammatory bowel disease [Unknown]
  - Pouchitis [Unknown]
  - Haemorrhoids [Unknown]
